FAERS Safety Report 24233623 (Version 1)
Quarter: 2024Q3

REPORT INFORMATION
  Report Type: Spontaneous
  Country: US (occurrence: US)
  Receive Date: 20240821
  Receipt Date: 20240821
  Transmission Date: 20241016
  Serious: No
  Sender: PERRIGO
  Company Number: US-PERRIGO-24US000567

PATIENT

DRUGS (1)
  1. MINOXIDIL [Suspect]
     Active Substance: MINOXIDIL
     Indication: Alopecia
     Dosage: UNKNOWN, UNKNOWN
     Route: 061

REACTIONS (5)
  - Application site erythema [Unknown]
  - Application site burn [Unknown]
  - Application site paraesthesia [Unknown]
  - Application site pain [Unknown]
  - Condition aggravated [Unknown]
